FAERS Safety Report 9346011 (Version 1)
Quarter: 2013Q2

REPORT INFORMATION
  Report Type: Spontaneous
  Country: RS (occurrence: RS)
  Receive Date: 20130613
  Receipt Date: 20130613
  Transmission Date: 20140414
  Serious: Yes (Hospitalization)
  Sender: FDA-Public Use
  Company Number: PHHY2013RS058501

PATIENT
  Sex: Female
  Weight: 64 kg

DRUGS (2)
  1. 5-FLUOROURACIL [Suspect]
     Indication: METASTASES TO LIVER
     Dosage: 1500 MG, UNK
  2. CISPLATIN PFIZER [Suspect]
     Indication: METASTASES TO LIVER
     Dosage: 50 MG/M2, UNK

REACTIONS (2)
  - Weight decreased [Unknown]
  - Feeling abnormal [Unknown]
